FAERS Safety Report 11062246 (Version 1)
Quarter: 2015Q2

REPORT INFORMATION
  Report Type: Spontaneous
  Country: FR (occurrence: FR)
  Receive Date: 20150424
  Receipt Date: 20150424
  Transmission Date: 20150821
  Serious: Yes (Hospitalization)
  Sender: FDA-Public Use
  Company Number: FR-PFIZER INC-2015130415

PATIENT
  Age: 8 Year
  Sex: Male

DRUGS (2)
  1. PARACETAMOL [Concomitant]
     Active Substance: ACETAMINOPHEN
     Indication: INFLUENZA LIKE ILLNESS
  2. ADVIL [Suspect]
     Active Substance: IBUPROFEN
     Indication: INFLUENZA LIKE ILLNESS
     Dosage: UNK, 1X/DAY
     Route: 048
     Dates: start: 20150211, end: 20150212

REACTIONS (1)
  - Gastritis [Recovered/Resolved]

NARRATIVE: CASE EVENT DATE: 20150212
